FAERS Safety Report 9795396 (Version 1)
Quarter: 2014Q1

REPORT INFORMATION
  Report Type: Other
  Country: GB (occurrence: GB)
  Receive Date: 20140103
  Receipt Date: 20140103
  Transmission Date: 20141002
  Serious: Yes (Other)
  Sender: FDA-Public Use
  Company Number: GB-GLENMARK GENERICS INC.-2013GMK007997

PATIENT
  Sex: Female

DRUGS (1)
  1. RIZATRIPTAN [Suspect]
     Indication: MIGRAINE
     Dosage: UNK
     Route: 048

REACTIONS (3)
  - Depression [Not Recovered/Not Resolved]
  - Eczema [Not Recovered/Not Resolved]
  - Psoriasis [Not Recovered/Not Resolved]
